FAERS Safety Report 5958775-6 (Version None)
Quarter: 2008Q4

REPORT INFORMATION
  Report Type: 
  Country: None (occurrence: None)
  Receive Date: 20081119
  Receipt Date: 20081104
  Transmission Date: 20090506
  Serious: Yes (Other)
  Sender: FDA-Public Use
  Company Number: IL-GENENTECH-271684

PATIENT
  Age: 44 Year
  Sex: Male

DRUGS (5)
  1. MABTHERA [Suspect]
     Indication: B-CELL LYMPHOMA
     Dosage: UNK
     Route: 042
     Dates: start: 20041101, end: 20050101
  2. MABTHERA [Suspect]
     Dosage: UNK
     Route: 042
     Dates: start: 20080806
  3. LAMIVUDINE [Concomitant]
     Indication: HEPATITIS B
     Dosage: UNK
     Dates: start: 20040101
  4. ADEFOVIR DIPIVOXIL KIT [Concomitant]
     Indication: HEPATITIS B
     Dosage: UNK
     Dates: start: 20040101
  5. ANTIDIABETIC DRUG NOS [Concomitant]
     Indication: DRUG USE FOR UNKNOWN INDICATION
     Route: 048

REACTIONS (1)
  - CEREBROVASCULAR ACCIDENT [None]
